FAERS Safety Report 8114154-7 (Version None)
Quarter: 2012Q1

REPORT INFORMATION
  Report Type: 
  Country: None (occurrence: None)
  Receive Date: 20120205
  Receipt Date: 20120126
  Transmission Date: 20120608
  Serious: Yes (Congenital Anomaly, Other)
  Sender: FDA-Public Use
  Company Number: PHHY2012DK006666

PATIENT

DRUGS (1)
  1. PAROXETINE [Suspect]
     Indication: DEPRESSION
     Dosage: 10 MG, UNK
     Route: 064

REACTIONS (2)
  - MENINGOMYELOCELE [None]
  - FOETAL EXPOSURE DURING PREGNANCY [None]
